FAERS Safety Report 8522111 (Version 3)
Quarter: 2012Q4

REPORT INFORMATION
  Report Type: 
  Country: US (occurrence: US)
  Receive Date: 20120419
  Receipt Date: 20121205
  Transmission Date: 20130627
  Serious: Yes (Hospitalization, Other)
  Sender: FDA-Public Use
  Company Number: US-ROCHE-791184

PATIENT
  Age: 34 None
  Sex: Male
  Weight: 44.04 kg

DRUGS (5)
  1. ACCUTANE [Suspect]
     Indication: ACNE CYSTIC
     Route: 065
  2. ACCUTANE [Suspect]
     Route: 065
     Dates: start: 1990, end: 1991
  3. ACCUTANE [Suspect]
     Route: 065
  4. ACCUTANE [Suspect]
     Route: 065
     Dates: start: 199803, end: 199908
  5. ACCUTANE [Suspect]
     Route: 065

REACTIONS (12)
  - Crohn^s disease [Unknown]
  - Emotional distress [Unknown]
  - Inflammatory bowel disease [Unknown]
  - Colitis ulcerative [Unknown]
  - Intestinal haemorrhage [Unknown]
  - Intestinal obstruction [Unknown]
  - Anal abscess [Unknown]
  - Large intestine polyp [Unknown]
  - Anal fissure [Unknown]
  - Anal fistula [Unknown]
  - Irritable bowel syndrome [Unknown]
  - Conjunctivitis [Unknown]
